FAERS Safety Report 16483361 (Version 9)
Quarter: 2020Q3

REPORT INFORMATION
  Report Type: Report from Study
  Country: PT (occurrence: PT)
  Receive Date: 20190627
  Receipt Date: 20200910
  Transmission Date: 20201102
  Serious: Yes (Other)
  Sender: FDA-Public Use
  Company Number: PT-PFIZER INC-2019272807

PATIENT
  Age: 72 Year
  Sex: Female
  Weight: 67 kg

DRUGS (20)
  1. PREGABALIN. [Concomitant]
     Active Substance: PREGABALIN
     Dosage: UNK
     Route: 065
     Dates: start: 20171030
  2. MORFINE [Concomitant]
     Active Substance: MORPHINE
     Dosage: UNK
     Route: 065
     Dates: start: 20161215
  3. PERINDOPRIL [Concomitant]
     Active Substance: PERINDOPRIL
     Dosage: UNK
     Route: 065
     Dates: start: 20160615
  4. FUSIDIC ACID [Concomitant]
     Active Substance: FUSIDIC ACID
     Indication: PURULENT DISCHARGE
     Dosage: UNK
     Route: 065
     Dates: start: 20170417, end: 20170421
  5. ZOLEDRONIC ACID [Suspect]
     Active Substance: ZOLEDRONIC ACID
     Indication: BREAST CANCER
     Dosage: 4 MG, MONTHLY
     Route: 042
     Dates: start: 20170127
  6. PARACETAMOL [Concomitant]
     Active Substance: ACETAMINOPHEN
     Dosage: UNK
     Route: 065
     Dates: start: 20180214, end: 20180214
  7. CLONIXIN [Concomitant]
     Active Substance: CLONIXIN
     Dosage: UNK
     Route: 065
     Dates: start: 20180123, end: 20181126
  8. TRASTUZUMAB. [Suspect]
     Active Substance: TRASTUZUMAB
     Indication: BREAST CANCER
     Dosage: MOST RECENT DOSE PRIOR TO THE EVENT: 24/MAY/2017MOST RECENT DOSE PRIOR TO THE EVENT: 30/MAR/2017
     Route: 042
     Dates: start: 20170127
  9. PREGABALIN. [Concomitant]
     Active Substance: PREGABALIN
     Indication: NEUROPATHY PERIPHERAL
     Dosage: UNK
     Route: 065
     Dates: start: 20170118
  10. LOPERAMIDE [Concomitant]
     Active Substance: LOPERAMIDE
     Dosage: UNK
     Route: 065
     Dates: start: 20170222, end: 20170222
  11. PITAVASTATIN. [Concomitant]
     Active Substance: PITAVASTATIN CALCIUM
     Dosage: UNK
     Route: 065
     Dates: start: 20160615
  12. CLOTRIMAZOL [Concomitant]
     Active Substance: CLOTRIMAZOLE
     Dosage: UNK
     Route: 065
     Dates: start: 20170206, end: 20170213
  13. FLUCLOXACILLIN [Concomitant]
     Active Substance: FLUCLOXACILLIN
     Indication: PYREXIA
     Dosage: UNK
     Route: 065
     Dates: start: 20170428, end: 20170505
  14. HYDROMORPHONE [Concomitant]
     Active Substance: HYDROMORPHONE
     Dosage: UNK
     Route: 065
     Dates: start: 20170118
  15. ESOMEPRAZOLE. [Concomitant]
     Active Substance: ESOMEPRAZOLE MAGNESIUM
     Dosage: UNK
     Route: 065
     Dates: start: 20170115
  16. TAXOL [Suspect]
     Active Substance: PACLITAXEL
     Indication: BREAST CANCER
     Dosage: 80 MG/M2, WEEKLY
     Route: 042
     Dates: start: 20170127, end: 20170417
  17. FEMARA [Suspect]
     Active Substance: LETROZOLE
     Indication: BREAST CANCER METASTATIC
     Dosage: 2.5 MG, 1X/DAY (DATE OF MOST RECENT DOSE 27JAN2017 )
     Route: 048
     Dates: start: 20161220
  18. INDAPAMIDE. [Concomitant]
     Active Substance: INDAPAMIDE
     Dosage: UNK
     Route: 065
     Dates: start: 20160615
  19. CLONIXIN [Concomitant]
     Active Substance: CLONIXIN
     Dosage: UNK
     Route: 065
     Dates: start: 20170118
  20. AZITHROMYCIN ANHYDROUS. [Concomitant]
     Active Substance: AZITHROMYCIN ANHYDROUS
     Indication: PYREXIA
     Dosage: UNK
     Route: 065
     Dates: start: 20170428, end: 20170501

REACTIONS (9)
  - Diarrhoea [Recovered/Resolved]
  - Vomiting [Recovered/Resolved]
  - Neuropathy peripheral [Not Recovered/Not Resolved]
  - Vulvovaginal inflammation [Recovered/Resolved]
  - Nausea [Recovered/Resolved]
  - Dysuria [Recovered/Resolved]
  - Asthenia [Recovered/Resolved]
  - Abdominal pain upper [Recovered/Resolved]
  - Rhinorrhoea [Recovered/Resolved]

NARRATIVE: CASE EVENT DATE: 20170206
